FAERS Safety Report 9624236 (Version 1)
Quarter: 2013Q4

REPORT INFORMATION
  Report Type: Spontaneous
  Country: IT (occurrence: IT)
  Receive Date: 20131015
  Receipt Date: 20131015
  Transmission Date: 20140711
  Serious: Yes (Hospitalization)
  Sender: FDA-Public Use
  Company Number: IT-BRISTOL-MYERS SQUIBB COMPANY-19498203

PATIENT
  Age: 61 Year
  Sex: Male

DRUGS (10)
  1. COUMADIN TABS 5 MG [Suspect]
     Indication: HEART VALVE REPLACEMENT
     Dosage: LAST DOSE:23SEP2013?1 UNIT
     Route: 048
     Dates: start: 20130901
  2. OKI [Suspect]
     Indication: INTERVERTEBRAL DISC DISORDER
     Dosage: GRANULATE FOR ORAL SOLUTION?LAST DOSE:23SEP2013
     Route: 048
     Dates: start: 20130801
  3. OMEPRAZEN [Concomitant]
     Dosage: CAPS
  4. TRIATEC [Concomitant]
     Dosage: TABS
  5. CONGESCOR [Concomitant]
     Dosage: TABS
  6. KANRENOL [Concomitant]
     Dosage: TABS
  7. SIVASTIN [Concomitant]
     Dosage: TABS
  8. PROZIN [Concomitant]
     Dosage: 1DF=40 MG/ML
     Route: 048
  9. LAMOTRIGINE [Concomitant]
     Dosage: TABS,DOC
  10. LORAZEPAM [Concomitant]
     Dosage: TABS

REACTIONS (3)
  - Prescribed overdose [Recovering/Resolving]
  - Asthenia [Recovering/Resolving]
  - Coagulation test abnormal [Recovering/Resolving]
